FAERS Safety Report 17474670 (Version 2)
Quarter: 2020Q2

REPORT INFORMATION
  Report Type: Report from Study
  Country: US (occurrence: US)
  Receive Date: 20200228
  Receipt Date: 20200522
  Transmission Date: 20200713
  Serious: Yes (Other)
  Sender: FDA-Public Use
  Company Number: US-EMD SERONO-9147928

PATIENT
  Age: 33 Year
  Sex: Female

DRUGS (2)
  1. MAVENCLAD [Suspect]
     Active Substance: CLADRIBINE
     Dosage: YEAR ONE MONTH TWO THERAPY.
     Route: 048
     Dates: end: 202002
  2. MAVENCLAD [Suspect]
     Active Substance: CLADRIBINE
     Indication: MULTIPLE SCLEROSIS
     Dosage: YEAR ONE MONTH ONE THERAPY.
     Route: 048
     Dates: start: 20200121

REACTIONS (5)
  - Nausea [Unknown]
  - Fatigue [Unknown]
  - Abdominal pain upper [Unknown]
  - Haematochezia [Unknown]
  - Nightmare [Unknown]

NARRATIVE: CASE EVENT DATE: 202001
